FAERS Safety Report 25680397 (Version 3)
Quarter: 2025Q3

REPORT INFORMATION
  Report Type: Spontaneous
  Country: US (occurrence: US)
  Receive Date: 20250814
  Receipt Date: 20250826
  Transmission Date: 20251021
  Serious: No
  Sender: AUROBINDO
  Company Number: US-AUROBINDO-AUR-APL-2025-041457

PATIENT
  Age: 23 Year
  Sex: Male
  Weight: 68.39 kg

DRUGS (4)
  1. PREDNISONE [Suspect]
     Active Substance: PREDNISONE
     Indication: Uveitis
     Route: 048
     Dates: start: 20250408
  2. BREPOCITINIB [Suspect]
     Active Substance: BREPOCITINIB
     Indication: Uveitis
     Route: 065
     Dates: start: 20250408
  3. BREPOCITINIB [Suspect]
     Active Substance: BREPOCITINIB
     Indication: Posterior segment of eye anomaly
  4. IMITREX [Concomitant]
     Active Substance: SUMATRIPTAN SUCCINATE
     Indication: Product used for unknown indication
     Route: 065
     Dates: start: 20250223

REACTIONS (1)
  - Blood creatine phosphokinase increased [Recovered/Resolved]

NARRATIVE: CASE EVENT DATE: 20250707
